FAERS Safety Report 24029311 (Version 1)
Quarter: 2024Q2

REPORT INFORMATION
  Report Type: Spontaneous
  Country: AU (occurrence: AU)
  Receive Date: 20240628
  Receipt Date: 20240628
  Transmission Date: 20240715
  Serious: Yes (Death)
  Sender: FDA-Public Use
  Company Number: AU-002147023-NVSC2024AU134810

PATIENT
  Sex: Male

DRUGS (1)
  1. RYDAPT [Suspect]
     Active Substance: MIDOSTAURIN
     Indication: Advanced systemic mastocytosis
     Dosage: UNK
     Route: 065

REACTIONS (2)
  - Advanced systemic mastocytosis [Fatal]
  - Malignant neoplasm progression [Fatal]
